FAERS Safety Report 7466220-7 (Version None)
Quarter: 2011Q2

REPORT INFORMATION
  Report Type: 
  Country: None (occurrence: None)
  Receive Date: 20110509
  Receipt Date: 20110426
  Transmission Date: 20111010
  Serious: Yes (Other)
  Sender: FDA-Public Use
  Company Number: CH-ELI_LILLY_AND_COMPANY-CH201104008055

PATIENT
  Age: 16 Year
  Sex: Female

DRUGS (2)
  1. FLUOXETINE [Suspect]
     Indication: SCHIZOAFFECTIVE DISORDER
     Dosage: 20 MG, QD
     Dates: start: 20101201, end: 20110405
  2. SEROQUEL [Concomitant]
     Indication: SCHIZOAFFECTIVE DISORDER
     Dosage: 400 MG, BID
     Dates: start: 20101201, end: 20110405

REACTIONS (8)
  - BLOOD CREATINE PHOSPHOKINASE INCREASED [None]
  - SUICIDE ATTEMPT [None]
  - ALANINE AMINOTRANSFERASE INCREASED [None]
  - MUSCULOSKELETAL PAIN [None]
  - ASPARTATE AMINOTRANSFERASE INCREASED [None]
  - POTENTIATING DRUG INTERACTION [None]
  - OFF LABEL USE [None]
  - SEDATION [None]
